FAERS Safety Report 4837074-X (Version None)
Quarter: 2005Q4

REPORT INFORMATION
  Report Type: 
  Country: None (occurrence: None)
  Receive Date: 20051122
  Receipt Date: 20051109
  Transmission Date: 20060501
  Serious: Yes (Hospitalization)
  Sender: FDA-Public Use
  Company Number: 2005BI013822

PATIENT
  Age: 64 Year
  Sex: Female

DRUGS (8)
  1. AVONEX [Suspect]
     Indication: MULTIPLE SCLEROSIS
     Dosage: 30 UG;QW;IM
     Route: 030
     Dates: start: 19970601
  2. AVONEX [Suspect]
     Indication: MULTIPLE SCLEROSIS
     Dosage: 30 UG;QW;IM
     Route: 030
  3. ASPIRIN [Concomitant]
  4. ATIVAN [Concomitant]
  5. BACLOFEN [Concomitant]
  6. BUTALBITAL [Concomitant]
  7. COLACE [Concomitant]
  8. DELTASONE [Concomitant]

REACTIONS (3)
  - CONDITION AGGRAVATED [None]
  - KNEE ARTHROPLASTY [None]
  - RHEUMATOID ARTHRITIS [None]
